FAERS Safety Report 6104687-7 (Version None)
Quarter: 2009Q1

REPORT INFORMATION
  Report Type: 
  Country: None (occurrence: None)
  Receive Date: 20090303
  Receipt Date: 20090223
  Transmission Date: 20090719
  Serious: Yes (Hospitalization)
  Sender: FDA-Public Use
  Company Number: 1000001711

PATIENT
  Age: 35 Year
  Sex: Female

DRUGS (8)
  1. THYROID TAB [Suspect]
     Indication: HYPOTHYROIDISM
     Dosage: 60 MG (60 MG, 1 IN 1 D), ORAL
     Route: 048
     Dates: start: 20080101, end: 20081112
  2. THYROID TAB [Suspect]
     Indication: HYPOTHYROIDISM
     Dosage: 60 MG (60 MG, 1 IN 1 D), ORAL; 75 MG (75 MG, 1 IN 1 D), ORAL
     Route: 048
     Dates: start: 20081116, end: 20090101
  3. THYROID TAB [Suspect]
     Indication: HYPOTHYROIDISM
     Dosage: 60 MG (60 MG, 1 IN 1 D), ORAL; 75 MG (75 MG, 1 IN 1 D), ORAL
     Route: 048
     Dates: start: 20090101
  4. FOLIC ACID [Concomitant]
  5. VITAMIN AND MINERAL PRENATAL SUPPLEMENT W/ FOLIC ACID CAP [Concomitant]
  6. VITAMIN B-12 [Concomitant]
  7. ZITHROMAX [Concomitant]
  8. CLINDAMYCIN HCL [Concomitant]

REACTIONS (7)
  - ARTHRALGIA [None]
  - DRUG EXPOSURE DURING PREGNANCY [None]
  - FATIGUE [None]
  - JOINT SWELLING [None]
  - MYALGIA [None]
  - PREGNANCY [None]
  - URTICARIA [None]
